FAERS Safety Report 5308257-X (Version None)
Quarter: 2007Q2

REPORT INFORMATION
  Report Type: 
  Country: None (occurrence: None)
  Receive Date: 20070426
  Receipt Date: 20070416
  Transmission Date: 20071010
  Serious: Yes (Hospitalization)
  Sender: FDA-Public Use
  Company Number: US-ELI_LILLY_AND_COMPANY-US200701006287

PATIENT
  Age: 65 Year
  Sex: Female

DRUGS (2)
  1. FORTEO [Suspect]
     Indication: OSTEOPOROSIS
     Dates: start: 20060801, end: 20070101
  2. FORTEO [Suspect]
     Dosage: UNK, QOD

REACTIONS (2)
  - CALCINOSIS [None]
  - SUBCUTANEOUS NODULE [None]
